FAERS Safety Report 8380443-4 (Version None)
Quarter: 2012Q2

REPORT INFORMATION
  Report Type: 
  Country: None (occurrence: None)
  Receive Date: 20120523
  Receipt Date: 20111206
  Transmission Date: 20120825
  Serious: Yes (Death)
  Sender: FDA-Public Use
  Company Number: US-GLAXOSMITHKLINE-A0957556A

PATIENT
  Age: 73 Year
  Sex: Female

DRUGS (6)
  1. XELODA [Concomitant]
  2. TYKERB [Suspect]
     Indication: BREAST CANCER
     Dosage: 750MG PER DAY
     Route: 048
     Dates: start: 20120222
  3. ATENOLOL [Concomitant]
  4. PLAVIX [Concomitant]
  5. AMLODIPINE BESYLATE [Concomitant]
  6. ASPIRIN [Concomitant]

REACTIONS (2)
  - DEATH [None]
  - VISION BLURRED [None]
